FAERS Safety Report 9733657 (Version 2)
Quarter: 2013Q4

REPORT INFORMATION
  Report Type: Report from Study
  Country: US (occurrence: US)
  Receive Date: 20131205
  Receipt Date: 20131205
  Transmission Date: 20140711
  Serious: Yes (Hospitalization)
  Sender: FDA-Public Use
  Company Number: US-TAKEDA-2013TUS002221

PATIENT
  Age: 65 Year
  Sex: Male
  Weight: 152 kg

DRUGS (7)
  1. BLINDED ALLOPURINOL [Suspect]
     Indication: HYPERURICAEMIA
     Dosage: UNK, QD
     Route: 048
     Dates: start: 20110228, end: 20131106
  2. BLINDED FEBUXOSTAT [Suspect]
     Indication: HYPERURICAEMIA
     Dosage: UNK, QD
     Route: 048
     Dates: start: 20110228, end: 20131106
  3. CITALOPRAM [Concomitant]
     Indication: DEPRESSION
     Dosage: 20 MG, QD
     Route: 048
     Dates: start: 20080612
  4. SIMVASTATIN [Concomitant]
     Indication: HYPERLIPIDAEMIA
     Dosage: 20 MG, QD
     Route: 048
     Dates: start: 20100422
  5. MULTIVITAMIN [Concomitant]
     Indication: NUTRITIONAL SUPPLEMENTATION
     Dosage: 1 DF, QD
     Route: 048
     Dates: start: 20120806
  6. EXENATIDE (BYDUREON) [Concomitant]
     Indication: DIABETES MELLITUS
     Dosage: 2 MG, 1/WEEK
     Route: 058
     Dates: start: 20120625
  7. COLCHICINE [Concomitant]
     Indication: GOUT
     Dosage: 0.6 MG, QD
     Route: 048
     Dates: start: 20130226

REACTIONS (1)
  - Obesity [Recovering/Resolving]
